FAERS Safety Report 13964459 (Version 2)
Quarter: 2017Q3

REPORT INFORMATION
  Report Type: Spontaneous
  Country: CN (occurrence: CN)
  Receive Date: 20170913
  Receipt Date: 20170922
  Transmission Date: 20171128
  Serious: Yes (Other)
  Sender: FDA-Public Use
  Company Number: CN-GE HEALTHCARE LIFE SCIENCES-2017CSU002815

PATIENT

DRUGS (2)
  1. OMNISCAN [Suspect]
     Active Substance: GADODIAMIDE
     Indication: HYPOTHALAMO-PITUITARY DISORDER
     Dosage: 15 ML (4.305G), SINGLE
     Route: 042
     Dates: start: 20170812, end: 20170812
  2. FEMOSTON [Concomitant]
     Active Substance: DYDROGESTERONE\ESTRADIOL
     Indication: AMENORRHOEA
     Dosage: 1 TABLET, QD
     Route: 048
     Dates: start: 20170816

REACTIONS (3)
  - Injection site pain [Recovered/Resolved]
  - Oedema peripheral [Not Recovered/Not Resolved]
  - Oedema peripheral [Recovered/Resolved]

NARRATIVE: CASE EVENT DATE: 20170812
